FAERS Safety Report 9964918 (Version 2)
Quarter: 2014Q1

REPORT INFORMATION
  Report Type: Spontaneous
  Country: US (occurrence: US)
  Receive Date: 20140305
  Receipt Date: 20140305
  Transmission Date: 20141002
  Serious: No
  Sender: FDA-Public Use
  Company Number: US-AMGEN-USASP2014001273

PATIENT
  Age: 34 Year
  Sex: Female
  Weight: 54.42 kg

DRUGS (3)
  1. ENBREL [Suspect]
     Indication: RHEUMATOID ARTHRITIS
     Dosage: 50 MG, QWK
     Route: 058
     Dates: start: 201307
  2. CELEXA                             /00582602/ [Concomitant]
     Dosage: 10 MG, UNK
  3. APRI [Concomitant]
     Dosage: UNK

REACTIONS (1)
  - Fatigue [Unknown]
